FAERS Safety Report 4493949-5 (Version None)
Quarter: 2004Q4

REPORT INFORMATION
  Report Type: 
  Country: None (occurrence: None)
  Receive Date: 20041105
  Receipt Date: 20041028
  Transmission Date: 20050328
  Serious: Yes (Death)
  Sender: FDA-Public Use
  Company Number: US-JNJFOC-20041100151

PATIENT
  Sex: Male

DRUGS (9)
  1. INFLIXIMAB [Suspect]
     Indication: RHEUMATOID ARTHRITIS
     Route: 042
  2. PROCHLORPERAZINE [Concomitant]
  3. PROPOXYPHENE [Concomitant]
  4. ALLOPURINOL [Concomitant]
  5. PREDNISONE [Concomitant]
  6. FLOMAX [Concomitant]
  7. PRILOSEC [Concomitant]
  8. DOXEPIN HCL [Concomitant]
  9. PRAVACHOL [Concomitant]

REACTIONS (1)
  - DEATH [None]
